FAERS Safety Report 8970725 (Version 1)
Quarter: 2012Q4

REPORT INFORMATION
  Report Type: 
  Country: US (occurrence: US)
  Receive Date: 20121218
  Receipt Date: 20121218
  Transmission Date: 20130627
  Serious: Yes (Other)
  Sender: FDA-Public Use
  Company Number: US-BRISTOL-MYERS SQUIBB COMPANY-16517336

PATIENT
  Age: 16 Year
  Sex: Female
  Weight: 58 kg

DRUGS (2)
  1. ABILIFY [Suspect]
     Indication: DEPRESSION
     Dosage: end of Mar2012 or the first week of Apr2012
     Dates: start: 2012
  2. ABILIFY [Suspect]
     Indication: PERSONALITY DISORDER
     Dosage: end of Mar2012 or the first week of Apr2012
     Dates: start: 2012

REACTIONS (4)
  - Dyspnoea [Unknown]
  - Dizziness [Unknown]
  - Somnolence [Unknown]
  - Vision blurred [Unknown]
